FAERS Safety Report 5725092-9 (Version None)
Quarter: 2008Q2

REPORT INFORMATION
  Report Type: 
  Country: None (occurrence: None)
  Receive Date: 20080501
  Receipt Date: 20080422
  Transmission Date: 20081010
  Serious: Yes (Hospitalization)
  Sender: FDA-Public Use
  Company Number: JP-ALLERGAN-0713478US

PATIENT
  Sex: Male

DRUGS (8)
  1. BOTOX [Suspect]
     Indication: MUSCLE SPASMS
     Dosage: 240 UNITS, SINGLE
     Route: 030
     Dates: start: 20071016, end: 20071016
  2. BOTOX [Suspect]
     Indication: MUSCLE SPASMS
     Dosage: 240 UNITS, SINGLE
     Route: 030
     Dates: start: 20071016, end: 20071016
  3. LANDSEN [Suspect]
     Indication: EPILEPSY
     Dosage: 2 MG, QD
     Route: 048
     Dates: start: 20071123, end: 20071210
  4. LANDSEN [Suspect]
     Dosage: 1 MG, QD
     Route: 048
     Dates: start: 20071211, end: 20071211
  5. DESYREL [Suspect]
     Indication: DEPRESSION
     Dosage: 100 MG, QD
     Route: 048
     Dates: end: 20071210
  6. DESYREL [Suspect]
     Dosage: 100 MG, QD
     Route: 048
     Dates: start: 20071211
  7. ZONISAMIDE [Suspect]
     Indication: EPILEPSY
     Dosage: 100 MG, QD
     Route: 048
     Dates: end: 20071210
  8. ZONISAMIDE [Suspect]
     Dosage: 100 MG, QD
     Route: 048
     Dates: start: 20071211

REACTIONS (3)
  - CHOLECYSTITIS [None]
  - PLEURISY [None]
  - PYOTHORAX [None]
